FAERS Safety Report 6823977-3 (Version None)
Quarter: 2010Q3

REPORT INFORMATION
  Report Type: 
  Country: None (occurrence: None)
  Receive Date: 20100708
  Receipt Date: 20070309
  Transmission Date: 20110219
  Serious: No
  Sender: FDA-Public Use
  Company Number: US-PFIZER INC-2006109248

PATIENT
  Sex: Male

DRUGS (23)
  1. CHANTIX [Suspect]
     Indication: EX-TOBACCO USER
     Route: 048
     Dates: start: 20060829
  2. TENORMIN [Concomitant]
  3. PROCARDIA XL [Concomitant]
  4. TRILAFON [Concomitant]
  5. LIBRIUM [Concomitant]
  6. ELAVIL [Concomitant]
  7. VASOTEC [Concomitant]
  8. NEXIUM [Concomitant]
  9. ZANTAC [Concomitant]
  10. GLUCOTROL XL [Concomitant]
  11. GLUCOPHAGE [Concomitant]
  12. HALCION [Concomitant]
  13. CENTRUM SILVER [Concomitant]
  14. VITAMIN E [Concomitant]
  15. VITAMIN C [Concomitant]
  16. ZYRTEC [Concomitant]
  17. FIBERCON [Concomitant]
  18. NEURONTIN [Concomitant]
  19. LIPITOR [Concomitant]
  20. AVANDIA [Concomitant]
  21. TRICOR [Concomitant]
  22. ZELNORM [Concomitant]
  23. LACTULOSE [Concomitant]

REACTIONS (8)
  - DIZZINESS [None]
  - DRUG INEFFECTIVE [None]
  - INSOMNIA [None]
  - MIDDLE INSOMNIA [None]
  - NAUSEA [None]
  - NERVOUSNESS [None]
  - PANIC REACTION [None]
  - TOBACCO USER [None]
